FAERS Safety Report 7637845-0 (Version None)
Quarter: 2011Q3

REPORT INFORMATION
  Report Type: 
  Country: None (occurrence: None)
  Receive Date: 20110713
  Receipt Date: 20110708
  Transmission Date: 20111222
  Serious: Yes (Other)
  Sender: FDA-Public Use
  Company Number: 2011029155

PATIENT
  Age: 12 Year
  Sex: Female
  Weight: 54.4316 kg

DRUGS (3)
  1. HIZENTRA [Suspect]
     Indication: IMMUNODEFICIENCY COMMON VARIABLE
     Dosage: (8 G 1X/WEEK, 4 GM 20 ML VIAL;40 ML IN 2-4 SITES OVER 1-2 HOURS SUBCUTANEOUS), (8 G 1X/WEEK SUBCUTAN
     Route: 058
     Dates: start: 20110305
  2. HIZENTRA [Suspect]
     Indication: IMMUNODEFICIENCY COMMON VARIABLE
     Dosage: (8 G 1X/WEEK, 4 GM 20 ML VIAL;40 ML IN 2-4 SITES OVER 1-2 HOURS SUBCUTANEOUS), (8 G 1X/WEEK SUBCUTAN
     Route: 058
     Dates: start: 20110626
  3. XOLAIR [Concomitant]

REACTIONS (1)
  - ABSCESS ORAL [None]
